FAERS Safety Report 23614833 (Version 2)
Quarter: 2024Q4

REPORT INFORMATION
  Report Type: Report from Study
  Country: BR (occurrence: BR)
  Receive Date: 20240311
  Receipt Date: 20241003
  Transmission Date: 20250114
  Serious: Yes (Hospitalization, Other)
  Sender: EMD SERONO INC
  Company Number: BR-Merck Healthcare KGaA-2024013068

PATIENT
  Age: 63 Year
  Sex: Female

DRUGS (4)
  1. INTERFERON BETA-1A [Suspect]
     Active Substance: INTERFERON BETA-1A
     Indication: Multiple sclerosis
     Route: 058
     Dates: start: 20191002
  2. ATENOLOL [Concomitant]
     Active Substance: ATENOLOL
     Indication: Hypertension
     Dosage: IN THE MORNING
  3. HOLMES H [Concomitant]
     Indication: Hypertension
     Dosage: 40/12.5 MG IN THE MORNING
  4. MANIVASC [Concomitant]
     Active Substance: MANIDIPINE HYDROCHLORIDE
     Indication: Hypertension
     Dosage: IN THE AFTERNOON

REACTIONS (6)
  - Pulmonary mass [Not Recovered/Not Resolved]
  - Pneumonitis [Unknown]
  - Arrhythmia [Not Recovered/Not Resolved]
  - Anxiety [Not Recovered/Not Resolved]
  - Insomnia [Not Recovered/Not Resolved]
  - Depressed mood [Not Recovered/Not Resolved]

NARRATIVE: CASE EVENT DATE: 20220101
